FAERS Safety Report 13968745 (Version 1)
Quarter: 2017Q3

REPORT INFORMATION
  Report Type: Spontaneous
  Country: GB (occurrence: GB)
  Receive Date: 20170914
  Receipt Date: 20170914
  Transmission Date: 20171128
  Serious: Yes (Hospitalization, Other)
  Sender: FDA-Public Use
  Company Number: GB-TEVA-804783ACC

PATIENT
  Age: 79 Year
  Sex: Male

DRUGS (23)
  1. MORPHINE [Concomitant]
     Active Substance: MORPHINE
  2. NALOXONE [Concomitant]
     Active Substance: NALOXONE
  3. ALFENTANIL. [Concomitant]
     Active Substance: ALFENTANIL
  4. MEROPENEM. [Concomitant]
     Active Substance: MEROPENEM
     Dates: start: 20170816, end: 20170822
  5. PROPOFOL. [Concomitant]
     Active Substance: PROPOFOL
  6. LEVOFLOXACIN. [Concomitant]
     Active Substance: LEVOFLOXACIN
  7. RANITIDINE. [Concomitant]
     Active Substance: RANITIDINE
  8. AMIODARONE [Concomitant]
     Active Substance: AMIODARONE
  9. GENTAMICIN. [Concomitant]
     Active Substance: GENTAMICIN
     Dosage: 15TH, 20TH, 21ST
     Dates: start: 20170815, end: 20170821
  10. NOREPINEPHRINE. [Concomitant]
     Active Substance: NOREPINEPHRINE
  11. TAZOCIN [Concomitant]
     Active Substance: PIPERACILLIN SODIUM\TAZOBACTAM SODIUM
     Dates: start: 20170814, end: 20170815
  12. TINZAPARIN SODIUM [Concomitant]
     Active Substance: TINZAPARIN SODIUM
  13. TRAMADOL. [Concomitant]
     Active Substance: TRAMADOL
  14. FENTANYL. [Concomitant]
     Active Substance: FENTANYL
  15. LOPERAMIDE [Concomitant]
     Active Substance: LOPERAMIDE
  16. MAGNASPARTATE [Concomitant]
  17. METRONIDAZOLE. [Concomitant]
     Active Substance: METRONIDAZOLE
  18. SALBUTAMOL [Concomitant]
     Active Substance: ALBUTEROL
  19. BISOPROLOL [Concomitant]
     Active Substance: BISOPROLOL
  20. FUROSEMIDE. [Concomitant]
     Active Substance: FUROSEMIDE
  21. HALOPERIDOL. [Concomitant]
     Active Substance: HALOPERIDOL
  22. PARACETAMOL [Concomitant]
     Active Substance: ACETAMINOPHEN
  23. LINEZOLID. [Suspect]
     Active Substance: LINEZOLID
     Indication: ABDOMINAL SEPSIS
     Dosage: 1200 MILLIGRAM DAILY;
     Route: 042
     Dates: start: 20170815, end: 20170823

REACTIONS (3)
  - Hypoglycaemia [Recovered/Resolved]
  - Somnolence [Unknown]
  - Delirium [Unknown]

NARRATIVE: CASE EVENT DATE: 20170815
